FAERS Safety Report 11139822 (Version 1)
Quarter: 2015Q2

REPORT INFORMATION
  Report Type: Spontaneous
  Country: US (occurrence: None)
  Receive Date: 20150526
  Receipt Date: 20150526
  Transmission Date: 20150821
  Serious: Yes (Disabling)
  Sender: FDA-Public Use
  Company Number: None

PATIENT
  Age: 14 Year
  Sex: Male

DRUGS (1)
  1. DULOXETINE BY PRASCO DULOXETINE 90MG 60 + 30 CAPSULES [Suspect]
     Active Substance: DULOXETINE
     Indication: DEPRESSION
     Dosage: 2 PILLS -60+30?
     Route: 048
     Dates: start: 20150503, end: 20150524

REACTIONS (2)
  - Depressive symptom [None]
  - Product substitution issue [None]

NARRATIVE: CASE EVENT DATE: 20150523
